FAERS Safety Report 18842869 (Version 1)
Quarter: 2021Q1

REPORT INFORMATION
  Report Type: Report from Study
  Country: US (occurrence: US)
  Receive Date: 20210203
  Receipt Date: 20210203
  Transmission Date: 20210419
  Serious: Yes (Other)
  Sender: FDA-Public Use
  Company Number: US-JAZZ-2021-US-001066

PATIENT
  Sex: Male

DRUGS (1)
  1. XYWAV [Suspect]
     Active Substance: CALCIUM OXYBATE\MAGNESIUM OXYBATE\POTASSIUM OXYBATE\SODIUM OXYBATE
     Indication: SLEEP DISORDER
     Dosage: 4.5 GRAM, BID
     Route: 048
     Dates: start: 202011

REACTIONS (2)
  - Multiple fractures [Unknown]
  - Joint injury [Unknown]
